FAERS Safety Report 11789578 (Version 1)
Quarter: 2015Q4

REPORT INFORMATION
  Report Type: Spontaneous
  Country: US (occurrence: US)
  Receive Date: 20151201
  Receipt Date: 20151201
  Transmission Date: 20160305
  Serious: Yes (Other)
  Sender: FDA-Public Use
  Company Number: US-BAXTER-2015BAX063465

PATIENT
  Age: 13 Year
  Sex: Male

DRUGS (3)
  1. CYCLOPHOSPHAMIDE FOR INJECTION, USP [Suspect]
     Active Substance: CYCLOPHOSPHAMIDE
     Indication: OFF LABEL USE
  2. VINCRISTINE [Suspect]
     Active Substance: VINCRISTINE
     Indication: LYMPHATIC DISORDER
     Dosage: 2 CYCLES
     Route: 065
  3. CYCLOPHOSPHAMIDE FOR INJECTION, USP [Suspect]
     Active Substance: CYCLOPHOSPHAMIDE
     Indication: LYMPHATIC DISORDER
     Dosage: 2 CYCLES
     Route: 065

REACTIONS (4)
  - No therapeutic response [Not Recovered/Not Resolved]
  - Neutropenia [Unknown]
  - Sepsis [Unknown]
  - Candida infection [Unknown]
